FAERS Safety Report 15429851 (Version 2)
Quarter: 2018Q4

REPORT INFORMATION
  Report Type: Spontaneous
  Country: DE (occurrence: DE)
  Receive Date: 20180926
  Receipt Date: 20181130
  Transmission Date: 20190204
  Serious: Yes (Hospitalization)
  Sender: FDA-Public Use
  Company Number: DE-TEVA-2018-DE-956603

PATIENT
  Sex: Male

DRUGS (1)
  1. VALSARTAN ABZ 80 MG FILMTABLETTEN [Suspect]
     Active Substance: VALSARTAN
     Dosage: .5 DOSAGE FORMS DAILY;
     Route: 048
     Dates: start: 201503

REACTIONS (1)
  - Prostate cancer [Recovered/Resolved]
